FAERS Safety Report 8476397-2 (Version None)
Quarter: 2012Q2

REPORT INFORMATION
  Report Type: 
  Country: None (occurrence: None)
  Receive Date: 20120628
  Receipt Date: 20120626
  Transmission Date: 20120825
  Serious: No
  Sender: FDA-Public Use
  Company Number: US-TEVA-345503USA

PATIENT
  Sex: Female
  Weight: 65.83 kg

DRUGS (2)
  1. PLAN B ONE-STEP [Suspect]
     Indication: POST COITAL CONTRACEPTION
     Dosage: 1.5 MILLIGRAM;
     Route: 048
     Dates: start: 20120519, end: 20120519
  2. FLEXERIL [Concomitant]
     Indication: MUSCLE SPASMS

REACTIONS (3)
  - MENSTRUATION IRREGULAR [None]
  - MENSTRUATION DELAYED [None]
  - BREAST PAIN [None]
